FAERS Safety Report 7552066-8 (Version None)
Quarter: 2011Q2

REPORT INFORMATION
  Report Type: 
  Country: None (occurrence: None)
  Receive Date: 20110616
  Receipt Date: 20110602
  Transmission Date: 20111010
  Serious: Yes (Other)
  Sender: FDA-Public Use
  Company Number: CA-JNJFOC-20110412524

PATIENT
  Sex: Male
  Weight: 68.5 kg

DRUGS (2)
  1. INFLIXIMAB, RECOMBINANT [Suspect]
     Indication: PSORIASIS
     Route: 042
     Dates: start: 20030701, end: 20041001
  2. ADALIMUMAB [Concomitant]
     Dates: start: 20090501

REACTIONS (1)
  - PROSTATE CANCER [None]
